FAERS Safety Report 10042835 (Version 2)
Quarter: 2014Q1

REPORT INFORMATION
  Report Type: Spontaneous
  Country: US (occurrence: US)
  Receive Date: 20140327
  Receipt Date: 20140327
  Transmission Date: 20141002
  Serious: Yes (Other)
  Sender: FDA-Public Use
  Company Number: US-RB-063064-14

PATIENT
  Age: 26 Year
  Sex: Female

DRUGS (4)
  1. SUBOXONE FILM [Suspect]
     Indication: DRUG DEPENDENCE
     Dosage: SUBOXONE FILM
     Route: 060
     Dates: start: 201309, end: 201401
  2. SUBOXONE FILM [Suspect]
     Dosage: SUBOXONE FILM; TAKING LESS THAN PRESCRIBED AND CUTTING TO ACHIEVE DOSING
     Route: 060
     Dates: start: 201401, end: 20140206
  3. PRENATAL VITAMINS [Concomitant]
     Indication: PRENATAL CARE
     Dosage: 1 TABLET DAILY
     Route: 048
     Dates: start: 201401, end: 20140206
  4. NICOTINE [Concomitant]
     Indication: NICOTINE DEPENDENCE
     Dosage: 1 CIGARETTE A DAY
     Route: 055

REACTIONS (5)
  - Maternal exposure during pregnancy [Recovered/Resolved]
  - Intentional underdose [Recovered/Resolved]
  - Wrong technique in drug usage process [Recovered/Resolved]
  - Vaginal haemorrhage [Recovered/Resolved]
  - Abortion spontaneous [Recovered/Resolved]
